FAERS Safety Report 9456062 (Version 1)
Quarter: 2013Q3

REPORT INFORMATION
  Report Type: Spontaneous
  Country: AT (occurrence: None)
  Receive Date: 20130808
  Receipt Date: 20130808
  Transmission Date: 20140515
  Serious: Yes (Life-Threatening, Hospitalization)
  Sender: FDA-Public Use
  Company Number: NGX_01924_2013

PATIENT
  Sex: Female

DRUGS (1)
  1. QUTENZA [Suspect]
     Indication: PRODUCT USED FOR UNKNOWN INDICATION
     Dosage: DF (PATCH) TOPICAL
     Route: 061
     Dates: end: 20130724

REACTIONS (1)
  - Circulatory collapse [None]
